FAERS Safety Report 8116786-9 (Version None)
Quarter: 2012Q1

REPORT INFORMATION
  Report Type: 
  Country: None (occurrence: None)
  Receive Date: 20120206
  Receipt Date: 20120130
  Transmission Date: 20120608
  Serious: Yes (Other)
  Sender: FDA-Public Use
  Company Number: PHEH2011US08450

PATIENT
  Sex: Female

DRUGS (8)
  1. LOVASTATIN [Concomitant]
  2. PROMETHAZINE [Concomitant]
  3. GILENYA [Suspect]
     Indication: MULTIPLE SCLEROSIS
     Dosage: 0.5 MG, QD
     Route: 048
     Dates: start: 20110207
  4. OMEPRAZOLE [Concomitant]
  5. LISINOPRIL AND HYDROCHLOROTHIAZIDE [Concomitant]
  6. TIZANIDINE HCL [Concomitant]
  7. SERTRALINE HYDROCHLORIDE [Concomitant]
  8. ENABLEX [Concomitant]

REACTIONS (3)
  - PARAESTHESIA [None]
  - MUSCLE SPASMS [None]
  - MONOPLEGIA [None]
